FAERS Safety Report 14756945 (Version 1)
Quarter: 2018Q2

REPORT INFORMATION
  Report Type: Spontaneous
  Country: US (occurrence: US)
  Receive Date: 20180408
  Receipt Date: 20180408
  Transmission Date: 20180711
  Serious: Yes (Other)
  Sender: FDA-Public Use
  Company Number: None

PATIENT
  Age: 57 Year
  Sex: Female
  Weight: 61.65 kg

DRUGS (3)
  1. ZOLPIDEM 10 MG TAB NOR, 10 MG ARUBINDO PHARMA [Suspect]
     Active Substance: ZOLPIDEM\ZOLPIDEM TARTRATE
     Indication: INSOMNIA
     Dosage: ?          QUANTITY:1 TABLET(S);?
     Route: 048
     Dates: start: 20180402, end: 20180404
  2. XANAX [Concomitant]
     Active Substance: ALPRAZOLAM
  3. ADDERALL [Concomitant]
     Active Substance: AMPHETAMINE ASPARTATE\AMPHETAMINE SULFATE\DEXTROAMPHETAMINE SACCHARATE\DEXTROAMPHETAMINE SULFATE

REACTIONS (8)
  - Anxiety [None]
  - Chest pain [None]
  - Neck pain [None]
  - Asthenia [None]
  - Tension [None]
  - Back pain [None]
  - Initial insomnia [None]
  - Pain in extremity [None]

NARRATIVE: CASE EVENT DATE: 20180402
